FAERS Safety Report 6999703-4 (Version None)
Quarter: 2010Q3

REPORT INFORMATION
  Report Type: 
  Country: None (occurrence: None)
  Receive Date: 20100920
  Receipt Date: 20070710
  Transmission Date: 20110219
  Serious: Yes (Hospitalization, Other)
  Sender: FDA-Public Use
  Company Number: US-ASTRAZENECA-2006UW12337

PATIENT
  Age: 23026 Day
  Sex: Female
  Weight: 74.8 kg

DRUGS (9)
  1. SEROQUEL [Suspect]
     Indication: DEPRESSION
     Dosage: 25-100MG
     Route: 048
     Dates: start: 20021228
  2. SEROQUEL [Suspect]
     Route: 048
  3. CLOZARIL [Concomitant]
  4. ZYPREXA [Concomitant]
  5. ACTOS [Concomitant]
     Route: 048
     Dates: start: 20000101
  6. METFORMIN HCL [Concomitant]
     Route: 048
     Dates: start: 20050102
  7. GLIPIZIDE [Concomitant]
     Route: 048
     Dates: start: 20050117
  8. LISINOPRIL AND HYDROCHLOROTHIAZIDE [Concomitant]
     Dosage: 20/25
     Route: 048
     Dates: start: 20030610
  9. PHENYTOIN [Concomitant]
     Route: 048
     Dates: start: 20040119

REACTIONS (5)
  - DIABETES MELLITUS [None]
  - DIABETES MELLITUS INADEQUATE CONTROL [None]
  - DIABETIC KETOACIDOSIS [None]
  - PANCREATITIS [None]
  - TYPE 2 DIABETES MELLITUS [None]
